FAERS Safety Report 5906245-3 (Version None)
Quarter: 2008Q4

REPORT INFORMATION
  Report Type: 
  Country: None (occurrence: None)
  Receive Date: 20081002
  Receipt Date: 20080922
  Transmission Date: 20090506
  Serious: Yes (Other)
  Sender: FDA-Public Use
  Company Number: LU-PFIZER INC-2008074879

PATIENT
  Age: 10 Year
  Sex: Female

DRUGS (4)
  1. DIFLUCAN [Suspect]
     Indication: MENINGITIS FUNGAL
     Dosage: DAILY DOSE:500MG
     Route: 048
     Dates: start: 20080807, end: 20080825
  2. LAMICTAL [Concomitant]
  3. TOPAMAX [Concomitant]
  4. MEDROL [Concomitant]

REACTIONS (3)
  - HEADACHE [None]
  - SKIN OEDEMA [None]
  - VERTIGO [None]
